FAERS Safety Report 24531859 (Version 2)
Quarter: 2024Q4

REPORT INFORMATION
  Report Type: Spontaneous
  Country: JP (occurrence: JP)
  Receive Date: 20241022
  Receipt Date: 20241202
  Transmission Date: 20250115
  Serious: Yes (Other)
  Sender: ALEXION PHARMACEUTICALS
  Company Number: JP-ASTRAZENECA-240109084_064320_P_1

PATIENT
  Age: 8 Decade

DRUGS (16)
  1. ANDEXXA [Suspect]
     Active Substance: ANDEXANET ALFA
     Dosage: SEE NARRATIVE
  2. ANDEXXA [Suspect]
     Active Substance: ANDEXANET ALFA
     Dosage: SEE NARRATIVE
  3. ANDEXXA [Suspect]
     Active Substance: ANDEXANET ALFA
     Dosage: SEE NARRATIVE
  4. ANDEXXA [Suspect]
     Active Substance: ANDEXANET ALFA
     Dosage: SEE NARRATIVE
  5. TELMISARTAN [Concomitant]
     Active Substance: TELMISARTAN
     Dosage: DOSE UNKNOWN
  6. TELMISARTAN [Concomitant]
     Active Substance: TELMISARTAN
     Dosage: DOSE UNKNOWN
  7. BISOPROLOL FUMARATE [Concomitant]
     Active Substance: BISOPROLOL FUMARATE
     Dosage: DOSE UNKNOWN
  8. BISOPROLOL FUMARATE [Concomitant]
     Active Substance: BISOPROLOL FUMARATE
     Dosage: DOSE UNKNOWN
  9. RIVAROXABAN [Concomitant]
     Active Substance: RIVAROXABAN
     Indication: Atrial fibrillation
     Dosage: 10 MILLIGRAM
  10. RIVAROXABAN [Concomitant]
     Active Substance: RIVAROXABAN
     Dosage: 10 MILLIGRAM
  11. DIGOXIN [Concomitant]
     Active Substance: DIGOXIN
     Dosage: DOSE UNKNOWN
  12. DIGOXIN [Concomitant]
     Active Substance: DIGOXIN
     Dosage: DOSE UNKNOWN
  13. DIGOXIN [Concomitant]
     Active Substance: DIGOXIN
     Dosage: DOSE UNKNOWN
  14. DIGOXIN [Concomitant]
     Active Substance: DIGOXIN
     Dosage: DOSE UNKNOWN
  15. FEBUXOSTAT [Concomitant]
     Active Substance: FEBUXOSTAT
     Dosage: DOSE UNKNOWN
  16. FEBUXOSTAT [Concomitant]
     Active Substance: FEBUXOSTAT
     Dosage: DOSE UNKNOWN

REACTIONS (1)
  - Bacteraemia [Unknown]
